FAERS Safety Report 19522945 (Version 2)
Quarter: 2021Q3

REPORT INFORMATION
  Report Type: Spontaneous
  Country: US (occurrence: US)
  Receive Date: 20210712
  Receipt Date: 20210825
  Transmission Date: 20211014
  Serious: No
  Sender: FDA-Public Use
  Company Number: US-SA-2021SA226028

PATIENT
  Age: 54 Year
  Sex: Female

DRUGS (1)
  1. DUPIXENT [Suspect]
     Active Substance: DUPILUMAB
     Indication: DERMATITIS ATOPIC
     Dosage: 300 MG, QOW
     Route: 058
     Dates: start: 20210302

REACTIONS (5)
  - Drug ineffective [Unknown]
  - Pruritus [Unknown]
  - Alopecia [Unknown]
  - Dermatitis atopic [Unknown]
  - Burning sensation [Unknown]

NARRATIVE: CASE EVENT DATE: 2021
